FAERS Safety Report 4322428-0 (Version None)
Quarter: 2004Q1

REPORT INFORMATION
  Report Type: 
  Country: None (occurrence: None)
  Receive Date: 20040319
  Receipt Date: 20040305
  Transmission Date: 20041129
  Serious: Yes (Death, Hospitalization)
  Sender: FDA-Public Use
  Company Number: 2004-BP-01693 (0)

PATIENT
  Age: 67 Year
  Sex: Male

DRUGS (7)
  1. SPIRIVA [Suspect]
     Indication: CHRONIC OBSTRUCTIVE AIRWAYS DISEASE
     Dosage: 18 MCG (18MCG, 1 PUFF DAILY)
     Route: 055
     Dates: start: 20030925, end: 20040202
  2. GLUCOPHAGE [Concomitant]
  3. INSULIN NPH (LOP) [Concomitant]
  4. MEDROL [Concomitant]
  5. PRAVACHOL [Concomitant]
  6. AMIORIT (AMIODARONE CLORHYDRATE) [Concomitant]
  7. COMBIVENT [Concomitant]

REACTIONS (2)
  - BRONCHOSPASM [None]
  - MULTI-ORGAN FAILURE [None]
